FAERS Safety Report 14535681 (Version 2)
Quarter: 2018Q2

REPORT INFORMATION
  Report Type: Spontaneous
  Country: US (occurrence: US)
  Receive Date: 20180215
  Receipt Date: 20180409
  Transmission Date: 20180711
  Serious: Yes (Death, Hospitalization, Other)
  Sender: FDA-Public Use
  Company Number: US-AMGEN-USASP2018019887

PATIENT
  Age: 65 Year
  Sex: Female

DRUGS (6)
  1. METHYLPREDNISOLONE. [Concomitant]
     Active Substance: METHYLPREDNISOLONE
     Indication: THROMBOCYTOPENIA
     Dosage: 125 MG, QD
     Route: 042
  2. IMMUNOGLOBULIN HUMAN NORMAL [Concomitant]
     Active Substance: HUMAN IMMUNOGLOBULIN G
  3. VANCOMYCIN [Concomitant]
     Active Substance: VANCOMYCIN
  4. PIPERACILLIN AND TAZOBACTAM [Concomitant]
     Active Substance: PIPERACILLIN SODIUM\TAZOBACTAM SODIUM
  5. ROMIPLOSTIM [Suspect]
     Active Substance: ROMIPLOSTIM
     Indication: THROMBOCYTOPENIA
     Dosage: 180 MUG, UNK
     Route: 065
  6. CEFTRIAXONE. [Suspect]
     Active Substance: CEFTRIAXONE
     Indication: URINARY TRACT INFECTION
     Dosage: 1 G, QD
     Route: 042

REACTIONS (3)
  - Condition aggravated [Unknown]
  - Off label use [Unknown]
  - Death [Fatal]
